FAERS Safety Report 7795655-8 (Version None)
Quarter: 2011Q4

REPORT INFORMATION
  Report Type: 
  Country: None (occurrence: None)
  Receive Date: 20111004
  Receipt Date: 20110922
  Transmission Date: 20120403
  Serious: Yes (Hospitalization)
  Sender: FDA-Public Use
  Company Number: CN-GLAXOSMITHKLINE-B0746220A

PATIENT
  Sex: Male
  Weight: 69 kg

DRUGS (4)
  1. ROPINIROLE [Suspect]
     Indication: PARKINSON'S DISEASE
     Dosage: 2MG PER DAY
     Route: 048
     Dates: start: 20100928
  2. SELEGILINE [Suspect]
     Indication: PARKINSON'S DISEASE
     Dosage: 5MG PER DAY
     Route: 048
     Dates: start: 20110201
  3. CELECOXIB [Concomitant]
     Indication: PAIN
     Dosage: 200MG PER DAY
     Route: 048
  4. MADOPAR [Concomitant]
     Indication: PARKINSON'S DISEASE
     Dosage: 25MG THREE TIMES PER DAY
     Route: 048
     Dates: start: 20110201

REACTIONS (2)
  - JOINT DISLOCATION [None]
  - HUMERUS FRACTURE [None]
